FAERS Safety Report 7177403-8 (Version None)
Quarter: 2010Q4

REPORT INFORMATION
  Report Type: 
  Country: None (occurrence: None)
  Receive Date: 20101220
  Receipt Date: 20101208
  Transmission Date: 20110411
  Serious: Yes (Death, Hospitalization, Other)
  Sender: FDA-Public Use
  Company Number: US-ELI_LILLY_AND_COMPANY-US201008007692

PATIENT
  Sex: Female

DRUGS (15)
  1. FORTEO [Suspect]
     Indication: OSTEOPOROSIS
     Dosage: 20 UG, DAILY (1/D)
  2. LASIX [Concomitant]
     Dosage: 80 MG, UNK
  3. LASIX [Concomitant]
     Dosage: 40 MG, UNK
  4. PLAVIX [Concomitant]
     Dosage: 75 MG, DAILY (1/D)
  5. XANAX [Concomitant]
     Dosage: UNK, 2/D
  6. SYNTHROID [Concomitant]
     Dosage: 75 MG, UNK
  7. PREDNISONE [Concomitant]
     Dosage: 20 MG, UNK
  8. VITAMIN D [Concomitant]
     Dosage: 50000 U, WEEKLY (1/W)
  9. CARDIZEM [Concomitant]
     Dosage: 120 MG, UNK
  10. MUCINEX [Concomitant]
     Dosage: UNK, 2/D
  11. POTASSIUM [Concomitant]
     Dosage: UNK, 2/D
  12. LORTAB [Concomitant]
     Dosage: 10 MG, 3/D
  13. DIFLUCAN [Concomitant]
     Indication: FUNGAL INFECTION
     Dosage: 200 MG, UNK
  14. SPIRIVA [Concomitant]
  15. ADVAIR [Concomitant]

REACTIONS (4)
  - CHRONIC OBSTRUCTIVE PULMONARY DISEASE [None]
  - DEATH [None]
  - OEDEMA PERIPHERAL [None]
  - TENDON INJURY [None]
